FAERS Safety Report 16807769 (Version 1)
Quarter: 2019Q3

REPORT INFORMATION
  Report Type: Spontaneous
  Country: FR (occurrence: FR)
  Receive Date: 20190915
  Receipt Date: 20190915
  Transmission Date: 20191005
  Serious: Yes (Other)
  Sender: FDA-Public Use
  Company Number: PHHY2019FR210438

PATIENT
  Age: 23 Year
  Sex: Female

DRUGS (2)
  1. FLAGYL [Suspect]
     Active Substance: METRONIDAZOLE\METRONIDAZOLE HYDROCHLORIDE
     Indication: TOOTH DISORDER
     Dosage: UNK
     Route: 065
  2. AMOXICILLIN. [Suspect]
     Active Substance: AMOXICILLIN
     Indication: TOOTH DISORDER
     Dosage: UNK
     Route: 065

REACTIONS (2)
  - Product contamination microbial [Unknown]
  - Vulvovaginal mycotic infection [Recovered/Resolved]

NARRATIVE: CASE EVENT DATE: 20190826
